FAERS Safety Report 19113694 (Version 1)
Quarter: 2021Q2

REPORT INFORMATION
  Report Type: Spontaneous
  Country: US (occurrence: US)
  Receive Date: 20210409
  Receipt Date: 20210409
  Transmission Date: 20210717
  Serious: No
  Sender: FDA-Public Use
  Company Number: US-ALLERGAN-2019623US

PATIENT
  Age: 29 Year
  Sex: Female

DRUGS (5)
  1. ABILIFY [Concomitant]
     Active Substance: ARIPIPRAZOLE
     Indication: DEPRESSION
  2. LILETTA [Suspect]
     Active Substance: LEVONORGESTREL
     Indication: HEAVY MENSTRUAL BLEEDING
     Dosage: 52 MG, SINGLE
     Route: 015
     Dates: start: 20200511, end: 20200511
  3. LAMICTAL [Concomitant]
     Active Substance: LAMOTRIGINE
     Indication: DEPRESSION
  4. ABILIFY [Concomitant]
     Active Substance: ARIPIPRAZOLE
     Indication: ANXIETY
     Dosage: 5 MG, QD
     Route: 048
  5. LAMICTAL [Concomitant]
     Active Substance: LAMOTRIGINE
     Indication: ANXIETY
     Dosage: 50 MG, BID
     Route: 048

REACTIONS (2)
  - Off label use [Unknown]
  - Procedural pain [Unknown]

NARRATIVE: CASE EVENT DATE: 20200511
